FAERS Safety Report 4742918-6 (Version None)
Quarter: 2005Q3

REPORT INFORMATION
  Report Type: 
  Country: None (occurrence: None)
  Receive Date: 20050811
  Receipt Date: 20050721
  Transmission Date: 20060218
  Serious: Yes (Other)
  Sender: FDA-Public Use
  Company Number: 2005UW11592

PATIENT
  Age: 25847 Day
  Sex: Female
  Weight: 70.5 kg

DRUGS (4)
  1. ATACAND [Suspect]
     Indication: BLOOD PRESSURE
     Route: 048
     Dates: start: 20041001
  2. ATACAND [Suspect]
     Route: 048
  3. ATACAND [Suspect]
     Route: 048
  4. GARLIC [Concomitant]

REACTIONS (3)
  - DIARRHOEA [None]
  - DIZZINESS [None]
  - MALAISE [None]
